FAERS Safety Report 6969615-0 (Version None)
Quarter: 2010Q3

REPORT INFORMATION
  Report Type: 
  Country: None (occurrence: None)
  Receive Date: 20100907
  Receipt Date: 20100902
  Transmission Date: 20110219
  Serious: Yes (Death, Hospitalization)
  Sender: FDA-Public Use
  Company Number: US-AMGEN-QUU431291

PATIENT
  Sex: Male
  Weight: 59.7 kg

DRUGS (6)
  1. NPLATE [Suspect]
     Indication: IDIOPATHIC THROMBOCYTOPENIC PURPURA
     Route: 058
     Dates: start: 20091007, end: 20091021
  2. CORTICOSTEROIDS [Concomitant]
  3. PREDNISONE [Concomitant]
     Dates: start: 20091007, end: 20091027
  4. MORPHINE [Concomitant]
     Route: 048
     Dates: start: 20091015, end: 20091027
  5. FERROUS SULFATE [Concomitant]
     Route: 048
  6. COLACE [Concomitant]
     Route: 048
     Dates: start: 20091015

REACTIONS (7)
  - ASTHENIA [None]
  - DEATH [None]
  - DEHYDRATION [None]
  - DYSPNOEA [None]
  - FAECES DISCOLOURED [None]
  - LETHARGY [None]
  - PAIN IN EXTREMITY [None]
